FAERS Safety Report 11697181 (Version 2)
Quarter: 2016Q1

REPORT INFORMATION
  Report Type: Spontaneous
  Country: ES (occurrence: ES)
  Receive Date: 20151104
  Receipt Date: 20160220
  Transmission Date: 20160525
  Serious: Yes (Other)
  Sender: FDA-Public Use
  Company Number: ES-BRISTOL-MYERS SQUIBB COMPANY-BMS-2015-075859

PATIENT
  Age: 7 Decade
  Sex: Female

DRUGS (2)
  1. MITOTANE [Suspect]
     Active Substance: MITOTANE
     Indication: ADRENOCORTICAL CARCINOMA
     Dosage: 300 MG, TID
     Route: 065
  2. HYDROCORTISONE. [Concomitant]
     Active Substance: HYDROCORTISONE
     Indication: PRODUCT USED FOR UNKNOWN INDICATION
     Dosage: 200 MG, QD
     Route: 065

REACTIONS (3)
  - Rash papulosquamous [Recovered/Resolved]
  - Lupus-like syndrome [Recovered/Resolved]
  - Rash pruritic [Recovered/Resolved]
